FAERS Safety Report 7366655-7 (Version None)
Quarter: 2011Q1

REPORT INFORMATION
  Report Type: 
  Country: None (occurrence: None)
  Receive Date: 20110310
  Receipt Date: 20110303
  Transmission Date: 20110831
  Serious: Yes (Other)
  Sender: FDA-Public Use
  Company Number: 2011MA002002

PATIENT
  Age: 58 Year
  Sex: Male

DRUGS (1)
  1. FLUOXETINE [Suspect]
     Indication: DEPRESSION
     Dosage: 20 MG; ; PO
     Route: 048
     Dates: start: 20110118, end: 20110208

REACTIONS (2)
  - DRUG INEFFECTIVE [None]
  - SUICIDAL IDEATION [None]
